FAERS Safety Report 18397094 (Version 1)
Quarter: 2020Q4

REPORT INFORMATION
  Report Type: Spontaneous
  Country: FR (occurrence: FR)
  Receive Date: 20201019
  Receipt Date: 20201019
  Transmission Date: 20210114
  Serious: Yes (Life-Threatening)
  Sender: FDA-Public Use
  Company Number: FR-TEVA-2020-FR-1838820

PATIENT
  Age: 77 Year
  Sex: Female

DRUGS (6)
  1. ACTONEL [Suspect]
     Active Substance: RISEDRONATE SODIUM
     Indication: PARKINSON^S DISEASE
     Dosage: 35 MG
     Route: 048
  2. NEUPRO [Suspect]
     Active Substance: ROTIGOTINE
     Indication: PARKINSON^S DISEASE
     Dosage: 1 DOSAGE FORMS
     Route: 062
     Dates: end: 20200915
  3. MANTADIX 100 MG, CAPSULE [Suspect]
     Active Substance: AMANTADINE HYDROCHLORIDE
     Indication: PARKINSON^S DISEASE
     Dosage: 1 DOSAGE FORMS
     Route: 048
  4. DOMPERIDONE ARROW 10 MG, COMPRIME PELLICULE [Suspect]
     Active Substance: DOMPERIDONE
     Indication: PROPHYLAXIS OF NAUSEA AND VOMITING
     Dosage: 2 DOSAGE FORMS
     Route: 048
  5. STALEVO [Suspect]
     Active Substance: CARBIDOPA\ENTACAPONE\LEVODOPA
     Indication: PARKINSON^S DISEASE
     Dosage: 3 DOSAGE FORMS
     Route: 048
  6. RASAGILINE RATIOPHARM 1 MG, COMPRIME [Suspect]
     Active Substance: RASAGILINE MESYLATE
     Indication: PARKINSON^S DISEASE
     Dosage: 1 DOSAGE FORMS
     Route: 048

REACTIONS (2)
  - Status epilepticus [Recovered/Resolved]
  - Coma [Recovered/Resolved]

NARRATIVE: CASE EVENT DATE: 20200914
